FAERS Safety Report 7705352-2 (Version None)
Quarter: 2011Q3

REPORT INFORMATION
  Report Type: 
  Country: None (occurrence: None)
  Receive Date: 20110824
  Receipt Date: 20110822
  Transmission Date: 20111222
  Serious: Yes (Hospitalization, Other)
  Sender: FDA-Public Use
  Company Number: US-AMGEN-USASP2011042896

PATIENT
  Age: 39 Year
  Sex: Male

DRUGS (2)
  1. NPLATE [Suspect]
     Indication: IDIOPATHIC THROMBOCYTOPENIC PURPURA
     Dates: start: 20110708
  2. CORTICOSTEROIDS [Concomitant]

REACTIONS (3)
  - HAEMATOLOGICAL MALIGNANCY [None]
  - NAUSEA [None]
  - THROMBOCYTOPENIA [None]
